FAERS Safety Report 7401187-9 (Version None)
Quarter: 2011Q2

REPORT INFORMATION
  Report Type: 
  Country: None (occurrence: None)
  Receive Date: 20110407
  Receipt Date: 20110405
  Transmission Date: 20111010
  Serious: Yes (Death, Hospitalization)
  Sender: FDA-Public Use
  Company Number: CO-B.I. PHARMACEUTICALS,INC./RIDGEFIELD-2011-RA-00106RA

PATIENT
  Age: 79 Year
  Sex: Female
  Weight: 55 kg

DRUGS (1)
  1. PRADAXA [Suspect]
     Indication: CEREBROVASCULAR ACCIDENT PROPHYLAXIS
     Dosage: 110 MG
     Route: 048
     Dates: start: 20110318, end: 20110401

REACTIONS (3)
  - DYSPEPSIA [None]
  - MELAENA [None]
  - PULMONARY OEDEMA [None]
